FAERS Safety Report 14697623 (Version 1)
Quarter: 2018Q1

REPORT INFORMATION
  Report Type: Spontaneous
  Country: US (occurrence: US)
  Receive Date: 20180330
  Receipt Date: 20180330
  Transmission Date: 20180509
  Serious: No
  Sender: FDA-Public Use
  Company Number: US-SA-2017SA217256

PATIENT
  Age: 70 Year
  Sex: Female

DRUGS (2)
  1. ALLEGRA ALLERGY [Suspect]
     Active Substance: FEXOFENADINE HYDROCHLORIDE
     Route: 065
  2. CALCITRIOL. [Concomitant]
     Active Substance: CALCITRIOL
     Dosage: DOSAGE FORM: NASAL SPRAY.

REACTIONS (5)
  - Nasal obstruction [Unknown]
  - Skin discolouration [Unknown]
  - Renal disorder [Unknown]
  - Hypertension [Unknown]
  - Eye pruritus [Unknown]
